FAERS Safety Report 11273084 (Version 2)
Quarter: 2015Q3

REPORT INFORMATION
  Report Type: Spontaneous
  Country: FR (occurrence: FR)
  Receive Date: 20150715
  Receipt Date: 20150724
  Transmission Date: 20151125
  Serious: Yes (Life-Threatening, Hospitalization)
  Sender: FDA-Public Use
  Company Number: FR-PFIZER INC-2015231357

PATIENT
  Age: 68 Year
  Sex: Female

DRUGS (7)
  1. SOVALDI [Interacting]
     Active Substance: SOFOSBUVIR
     Dosage: 400 MG, DAILY
     Route: 048
  2. FLECAINE [Concomitant]
     Active Substance: FLECAINIDE
     Dosage: 100 MG, UNK
     Dates: start: 20150122, end: 20150122
  3. OLYSIO [Interacting]
     Active Substance: SIMEPREVIR
     Dosage: 150 MG, DAILY
     Route: 048
  4. SOTALEX [Concomitant]
     Active Substance: SOTALOL
     Dosage: UNK
  5. ACEBUTOLOL HYDROCHLORIDE. [Interacting]
     Active Substance: ACEBUTOLOL HYDROCHLORIDE
     Indication: ATRIAL FIBRILLATION
     Dosage: 200 MG, SINGLE (ONCE)
     Route: 048
     Dates: start: 20150122, end: 20150122
  6. CORDARONE [Suspect]
     Active Substance: AMIODARONE HYDROCHLORIDE
     Indication: ATRIAL FIBRILLATION
     Dosage: UNK
     Route: 048
     Dates: start: 201403, end: 20150121
  7. PREVISCAN [Concomitant]
     Active Substance: FLUINDIONE
     Indication: ATRIAL FIBRILLATION
     Dosage: UNK
     Dates: start: 201403, end: 20150121

REACTIONS (2)
  - Drug interaction [Recovered/Resolved]
  - Sinus bradycardia [Recovered/Resolved]

NARRATIVE: CASE EVENT DATE: 20150122
